FAERS Safety Report 7967281-9 (Version None)
Quarter: 2011Q4

REPORT INFORMATION
  Report Type: 
  Country: None (occurrence: None)
  Receive Date: 20111206
  Receipt Date: 20111121
  Transmission Date: 20120403
  Serious: Yes (Hospitalization)
  Sender: FDA-Public Use
  Company Number: 2011SGN00305

PATIENT
  Age: 35 Year
  Sex: Male
  Weight: 71.7 kg

DRUGS (5)
  1. ACETAMINOPHEN [Concomitant]
  2. NYSTATIN [Concomitant]
  3. BRENTUXIMAB VEDOTIN (BRENTUXIMAB VEDOTIN) INJECTION [Suspect]
     Indication: T-CELL LYMPHOMA
     Dosage: 1.8 MG/KG, Q21D, INTRAVENOUS
     Route: 042
     Dates: start: 20111005, end: 20111026
  4. ACYCLOVIR [Concomitant]
  5. LORAZEPAM [Concomitant]

REACTIONS (13)
  - PLATELET COUNT DECREASED [None]
  - FEBRILE NEUTROPENIA [None]
  - SINUS CONGESTION [None]
  - PRODUCTIVE COUGH [None]
  - ASPIRATION [None]
  - PNEUMONIA [None]
  - ANAEMIA [None]
  - UPPER-AIRWAY COUGH SYNDROME [None]
  - LOWER RESPIRATORY TRACT INFECTION FUNGAL [None]
  - WHITE BLOOD CELL COUNT DECREASED [None]
  - LOWER RESPIRATORY TRACT INFECTION VIRAL [None]
  - SINUSITIS [None]
  - LOWER RESPIRATORY TRACT INFECTION BACTERIAL [None]
